FAERS Safety Report 14630485 (Version 1)
Quarter: 2018Q1

REPORT INFORMATION
  Report Type: Spontaneous
  Country: US (occurrence: US)
  Receive Date: 20180313
  Receipt Date: 20180313
  Transmission Date: 20180509
  Serious: Yes (Hospitalization)
  Sender: FDA-Public Use
  Company Number: US-GLAXOSMITHKLINE-US2018040658

PATIENT
  Sex: Female

DRUGS (5)
  1. ADVAIR DISKUS [Suspect]
     Active Substance: FLUTICASONE PROPIONATE\SALMETEROL XINAFOATE
     Indication: ASTHMA
     Dosage: 1 PUFF(S), BID
     Route: 055
     Dates: start: 1999
  2. PROVENTIL [Concomitant]
     Active Substance: ALBUTEROL
  3. METAXALONE. [Concomitant]
     Active Substance: METAXALONE
  4. FLONASE [Concomitant]
     Active Substance: FLUTICASONE PROPIONATE
  5. ALLEGRA [Concomitant]
     Active Substance: FEXOFENADINE HYDROCHLORIDE

REACTIONS (10)
  - Cough [Unknown]
  - Myofascial pain syndrome [Unknown]
  - Mobility decreased [Recovered/Resolved]
  - Muscle rigidity [Unknown]
  - Nerve compression [Unknown]
  - Ligament rupture [Unknown]
  - Condition aggravated [Unknown]
  - Pain [Unknown]
  - Nasopharyngitis [Unknown]
  - Limb discomfort [Recovered/Resolved]

NARRATIVE: CASE EVENT DATE: 2000
